FAERS Safety Report 25069223 (Version 1)
Quarter: 2025Q1

REPORT INFORMATION
  Report Type: Spontaneous
  Country: US (occurrence: US)
  Receive Date: 20250312
  Receipt Date: 20250312
  Transmission Date: 20250409
  Serious: Yes (Other)
  Sender: ORGANON
  Company Number: US-ORGANON-O2503USA000588

PATIENT
  Sex: Female

DRUGS (1)
  1. NEXPLANON [Suspect]
     Active Substance: ETONOGESTREL
     Route: 059
     Dates: start: 20240319

REACTIONS (5)
  - Pregnancy with implant contraceptive [Recovered/Resolved]
  - Unintended pregnancy [Recovered/Resolved]
  - Abortion spontaneous [Unknown]
  - Abdominal pain [Not Recovered/Not Resolved]
  - Complication associated with device [Not Recovered/Not Resolved]
